FAERS Safety Report 9970724 (Version 1)
Quarter: 2014Q1

REPORT INFORMATION
  Report Type: Spontaneous
  Country: US (occurrence: None)
  Receive Date: 20140305
  Receipt Date: 20140305
  Transmission Date: 20141002
  Serious: Yes (Other)
  Sender: FDA-Public Use
  Company Number: None

PATIENT
  Age: 26 Year
  Sex: Female
  Weight: 60.33 kg

DRUGS (1)
  1. CHANTIX [Suspect]
     Indication: SMOKING CESSATION THERAPY
     Dosage: TAKEN BY MOUTH
     Dates: start: 20140224, end: 20140225

REACTIONS (7)
  - Tension [None]
  - Hallucination, visual [None]
  - Paranoia [None]
  - Anxiety [None]
  - Muscle twitching [None]
  - Muscle spasms [None]
  - Mania [None]
